FAERS Safety Report 24946838 (Version 2)
Quarter: 2025Q3

REPORT INFORMATION
  Report Type: Spontaneous
  Country: US (occurrence: US)
  Receive Date: 20250210
  Receipt Date: 20250704
  Transmission Date: 20251020
  Serious: Yes (Other)
  Sender: SANOFI AVENTIS
  Company Number: US-SA-2025SA038731

PATIENT
  Age: 69 Year
  Sex: Male

DRUGS (2)
  1. KEVZARA [Suspect]
     Active Substance: SARILUMAB
     Indication: Polymyalgia rheumatica
     Dosage: 200 MG, QOW
     Route: 058
     Dates: start: 20240805, end: 202505
  2. KEVZARA [Suspect]
     Active Substance: SARILUMAB
     Indication: Seasonal allergy

REACTIONS (4)
  - Infection [Recovering/Resolving]
  - Cellulitis [Unknown]
  - White blood cell count decreased [Recovered/Resolved]
  - Product use in unapproved indication [Unknown]

NARRATIVE: CASE EVENT DATE: 20250129
